FAERS Safety Report 11929992 (Version 1)
Quarter: 2016Q1

REPORT INFORMATION
  Report Type: Spontaneous
  Country: CH (occurrence: CH)
  Receive Date: 20160120
  Receipt Date: 20160120
  Transmission Date: 20160526
  Serious: Yes (Other)
  Sender: FDA-Public Use
  Company Number: PHHY2016CH004681

PATIENT
  Age: 49 Year
  Sex: Female

DRUGS (2)
  1. ANASTROZOL [Suspect]
     Active Substance: ANASTROZOLE
     Indication: ANTIOESTROGEN THERAPY
     Dosage: UNK
     Route: 065
     Dates: start: 200211, end: 200503
  2. ZOLEDRONIC ACID [Suspect]
     Active Substance: ZOLEDRONIC ACID
     Indication: BREAST CANCER
     Dosage: UNK
     Route: 065
     Dates: start: 200305, end: 200606

REACTIONS (1)
  - Osteolysis [Unknown]

NARRATIVE: CASE EVENT DATE: 200503
